FAERS Safety Report 5978132-6 (Version None)
Quarter: 2008Q4

REPORT INFORMATION
  Report Type: 
  Country: None (occurrence: None)
  Receive Date: 20081204
  Receipt Date: 20081125
  Transmission Date: 20090506
  Serious: Yes (Death)
  Sender: FDA-Public Use
  Company Number: US-BAYER-200825260NA

PATIENT
  Age: 62 Year
  Sex: Male

DRUGS (3)
  1. BETASERON [Suspect]
     Indication: RELAPSING-REMITTING MULTIPLE SCLEROSIS
     Route: 058
     Dates: start: 19950505, end: 20010108
  2. BETASERON [Suspect]
     Dosage: TOTAL DAILY DOSE: 8 MIU
     Route: 058
     Dates: start: 20010129
  3. TIZANIDINE HCL [Concomitant]
     Indication: MUSCLE SPASMS

REACTIONS (10)
  - COGNITIVE DISORDER [None]
  - DEPRESSION [None]
  - GUN SHOT WOUND [None]
  - HYPERTENSION [None]
  - INSOMNIA [None]
  - MEMORY IMPAIRMENT [None]
  - MICTURITION URGENCY [None]
  - MULTIPLE SCLEROSIS [None]
  - THYROID DISORDER [None]
  - URINARY INCONTINENCE [None]
